FAERS Safety Report 4449866-X (Version None)
Quarter: 2004Q3

REPORT INFORMATION
  Report Type: 
  Country: None (occurrence: None)
  Receive Date: 20040915
  Receipt Date: 20040114
  Transmission Date: 20050211
  Serious: Yes (Hospitalization)
  Sender: FDA-Public Use
  Company Number: PHEH2004US00884

PATIENT
  Age: 66 Year
  Sex: Female

DRUGS (5)
  1. TEGRETOL-XR [Suspect]
     Indication: CONVULSION
     Dosage: 400 MG, BID
     Route: 048
  2. NEURONTIN [Concomitant]
     Indication: CONVULSION
     Dosage: 400 MG, TID
     Route: 048
     Dates: start: 19940101
  3. DOXEPIN HCL [Concomitant]
     Dosage: 10 MG, QHS
     Dates: start: 20030101
  4. DOXEPIN HCL [Concomitant]
     Dosage: 20 MG, QHS
  5. ASPIRIN [Concomitant]

REACTIONS (3)
  - CORONARY ARTERY OCCLUSION [None]
  - MYOCARDIAL INFARCTION [None]
  - STENT PLACEMENT [None]
